FAERS Safety Report 5251866-7 (Version None)
Quarter: 2007Q1

REPORT INFORMATION
  Report Type: 
  Country: None (occurrence: None)
  Receive Date: 20070228
  Receipt Date: 20070213
  Transmission Date: 20070707
  Serious: Yes (Hospitalization, Other)
  Sender: FDA-Public Use
  Company Number: US-PFIZER INC-2006140274

PATIENT
  Sex: Female
  Weight: 58.1 kg

DRUGS (2)
  1. BEXTRA [Suspect]
     Indication: PAIN
     Route: 048
  2. BEXTRA [Suspect]
     Indication: ARTHRITIS

REACTIONS (4)
  - AMNESIA [None]
  - APHASIA [None]
  - BLINDNESS [None]
  - CEREBROVASCULAR ACCIDENT [None]
